FAERS Safety Report 16836542 (Version 1)
Quarter: 2019Q3

REPORT INFORMATION
  Report Type: Report from Study
  Country: US (occurrence: US)
  Receive Date: 20190921
  Receipt Date: 20190921
  Transmission Date: 20191005
  Serious: Yes (Other)
  Sender: FDA-Public Use
  Company Number: US-TAKEDA-2019TUS003362

PATIENT
  Sex: Male

DRUGS (1)
  1. PONATINIB [Suspect]
     Active Substance: PONATINIB
     Indication: ACUTE LYMPHOCYTIC LEUKAEMIA
     Dosage: 30 MILLIGRAM, QD
     Route: 048
     Dates: start: 20180726

REACTIONS (6)
  - Multiple allergies [Unknown]
  - Rash pruritic [Unknown]
  - Leukaemia recurrent [Unknown]
  - Rash generalised [Unknown]
  - Neuropathy peripheral [Unknown]
  - Drug ineffective [Unknown]
